FAERS Safety Report 21096392 (Version 1)
Quarter: 2022Q3

REPORT INFORMATION
  Report Type: Spontaneous
  Country: US (occurrence: None)
  Receive Date: 20220718
  Receipt Date: 20220718
  Transmission Date: 20221026
  Serious: Yes (Life-Threatening)
  Sender: FDA-Public Use
  Company Number: None

PATIENT
  Age: 65 Year
  Sex: Male
  Weight: 84.6 kg

DRUGS (3)
  1. METOPROLOL [Suspect]
     Active Substance: METOPROLOL
     Indication: Blood pressure measurement
     Dosage: FREQUENCY : DAILY; 1 TABLET?
     Route: 048
     Dates: start: 20220501, end: 20220713
  2. OMEPRAZOLE [Concomitant]
     Active Substance: OMEPRAZOLE
  3. mult- vitamin [Concomitant]

REACTIONS (6)
  - Blood pressure increased [None]
  - Migraine [None]
  - Product substitution issue [None]
  - Suspected product quality issue [None]
  - Flatulence [None]
  - Hiatus hernia [None]

NARRATIVE: CASE EVENT DATE: 20220623
